FAERS Safety Report 6992573-X (Version None)
Quarter: 2010Q3

REPORT INFORMATION
  Report Type: 
  Country: None (occurrence: None)
  Receive Date: 20100917
  Receipt Date: 20100906
  Transmission Date: 20110219
  Serious: Yes (Life-Threatening, Hospitalization, Disabling, Other)
  Sender: FDA-Public Use
  Company Number: PT-ROCHE-726126

PATIENT
  Age: 30 Year
  Sex: Male
  Weight: 120 kg

DRUGS (1)
  1. TAMIFLU [Suspect]
     Route: 065

REACTIONS (9)
  - APHASIA [None]
  - CARDIO-RESPIRATORY ARREST [None]
  - COMA [None]
  - COMMUNICATION DISORDER [None]
  - INFLUENZA [None]
  - MOTOR DYSFUNCTION [None]
  - MULTI-ORGAN FAILURE [None]
  - PNEUMONIA [None]
  - VISUAL IMPAIRMENT [None]
